FAERS Safety Report 7230477-8 (Version None)
Quarter: 2011Q1

REPORT INFORMATION
  Report Type: 
  Country: None (occurrence: None)
  Receive Date: 20110117
  Receipt Date: 20110107
  Transmission Date: 20110831
  Serious: Yes (Other)
  Sender: FDA-Public Use
  Company Number: PHHY2010US89572

PATIENT
  Sex: Female
  Weight: 99.773 kg

DRUGS (6)
  1. EFFEXOR [Concomitant]
     Dosage: 150 MG, QD
  2. CYMBALTA [Concomitant]
     Dosage: UNK
  3. LAMISIL [Suspect]
     Indication: ONYCHOMYCOSIS
     Dosage: 250 MG, QD
     Route: 048
     Dates: start: 20090610, end: 20100112
  4. NAPROXEN [Concomitant]
     Dosage: 440 MG, BID
  5. DETROL [Concomitant]
     Dosage: 5 MG, QD
  6. TRAZODONE HCL [Concomitant]
     Dosage: 150 MG, UNK

REACTIONS (7)
  - DEHYDRATION [None]
  - MALAISE [None]
  - EATING DISORDER [None]
  - AGEUSIA [None]
  - DYSGEUSIA [None]
  - HEPATIC ENZYME INCREASED [None]
  - MALNUTRITION [None]
